FAERS Safety Report 18483883 (Version 3)
Quarter: 2020Q4

REPORT INFORMATION
  Report Type: Report from Study
  Country: IL (occurrence: IL)
  Receive Date: 20201110
  Receipt Date: 20201221
  Transmission Date: 20210114
  Serious: Yes (Hospitalization)
  Sender: FDA-Public Use
  Company Number: IL-EMD SERONO-9196890

PATIENT
  Age: 43 Year
  Sex: Female

DRUGS (1)
  1. REBIF [Suspect]
     Active Substance: INTERFERON BETA-1A
     Indication: PRODUCT USED FOR UNKNOWN INDICATION
     Route: 058
     Dates: start: 20011101, end: 202011

REACTIONS (4)
  - Peau d^orange [Recovered/Resolved]
  - Lack of injection site rotation [Unknown]
  - Mobility decreased [Recovering/Resolving]
  - Injection site erythema [Recovered/Resolved]
